FAERS Safety Report 15362361 (Version 1)
Quarter: 2018Q3

REPORT INFORMATION
  Report Type: Spontaneous
  Country: CH (occurrence: CH)
  Receive Date: 20180907
  Receipt Date: 20180907
  Transmission Date: 20181010
  Serious: Yes (Life-Threatening)
  Sender: FDA-Public Use
  Company Number: CH-MYLANLABS-2018M1064518

PATIENT
  Age: 70 Year
  Sex: Male

DRUGS (8)
  1. FACTOR IX [Concomitant]
     Active Substance: COAGULATION FACTOR IX HUMAN
     Dosage: 2400 IU (35 IU/KG)
     Route: 065
  2. FACTOR IX [Concomitant]
     Active Substance: COAGULATION FACTOR IX HUMAN
     Indication: FACTOR IX DEFICIENCY
     Dosage: 4800 IU (70 IU/KG)
     Route: 065
  3. ACETYLSALICYLIC ACID [Suspect]
     Active Substance: ASPIRIN
     Dosage: DISCHARGED HOME ON 100 MG ASPIRIN
  4. HEPARIN [Suspect]
     Active Substance: HEPARIN SODIUM
     Indication: ANTICOAGULANT THERAPY
     Dosage: 5000 IU
     Route: 042
  5. CLOPIDOGREL [Suspect]
     Active Substance: CLOPIDOGREL BISULFATE
     Indication: ANTIPLATELET THERAPY
     Dosage: LOADING DOSE
     Route: 048
  6. HEPARIN [Suspect]
     Active Substance: HEPARIN SODIUM
     Dosage: 3000 IU
     Route: 042
  7. ACETYLSALICYLIC ACID [Suspect]
     Active Substance: ASPIRIN
     Indication: ANTIPLATELET THERAPY
     Dosage: 500 MG
     Route: 042
  8. FACTOR IX [Concomitant]
     Active Substance: COAGULATION FACTOR IX HUMAN
     Dosage: 1200 IU (17 IU/KG)
     Route: 065

REACTIONS (4)
  - Vascular access site haematoma [Unknown]
  - Tongue haematoma [Recovered/Resolved]
  - Pharyngeal haematoma [Recovered/Resolved]
  - Obstructive airways disorder [Recovered/Resolved]
